FAERS Safety Report 17218320 (Version 1)
Quarter: 2020Q1

REPORT INFORMATION
  Report Type: Spontaneous
  Country: US (occurrence: US)
  Receive Date: 20191230
  Receipt Date: 20191230
  Transmission Date: 20200409
  Serious: Yes (Hospitalization)
  Sender: FDA-Public Use
  Company Number: None

PATIENT
  Age: 51 Year
  Sex: Female
  Weight: 71.1 kg

DRUGS (1)
  1. MK-3475 (PEMBROLIZUMAB) [Suspect]
     Active Substance: PEMBROLIZUMAB
     Indication: OVARIAN CANCER
     Dosage: ?          OTHER FREQUENCY:EVERY 21 DAYS;?
     Route: 042
     Dates: start: 20190620, end: 20191101

REACTIONS (3)
  - Adverse drug reaction [None]
  - Autoimmune nephritis [None]
  - Acute kidney injury [None]

NARRATIVE: CASE EVENT DATE: 20191009
